FAERS Safety Report 8046982 (Version 2)
Quarter: 2012Q4

REPORT INFORMATION
  Report Type: 
  Country: US (occurrence: US)
  Receive Date: 20110721
  Receipt Date: 20121025
  Transmission Date: 20130627
  Serious: Yes (Congenital Anomaly, Other)
  Sender: FDA-Public Use
  Company Number: US-PFIZER INC-2011159904

PATIENT

DRUGS (3)
  1. ZOLOFT [Suspect]
     Dosage: 25 mg, 1x/day
     Route: 064
     Dates: start: 200609
  2. SERTRALINE HCL [Suspect]
     Dosage: 50 mg, 1x/day
     Route: 064
     Dates: start: 200707
  3. EFFEXOR [Suspect]
     Dosage: UNK
     Route: 064

REACTIONS (5)
  - Maternal exposure timing unspecified [Unknown]
  - Congenital hand malformation [Unknown]
  - Anal atresia [Unknown]
  - Atrial septal defect [Unknown]
  - Congenital anomaly [Unknown]
